FAERS Safety Report 7469199-7 (Version None)
Quarter: 2011Q2

REPORT INFORMATION
  Report Type: 
  Country: None (occurrence: None)
  Receive Date: 20110510
  Receipt Date: 20110505
  Transmission Date: 20111010
  Serious: No
  Sender: FDA-Public Use
  Company Number: US-TEVA-275144USA

PATIENT
  Sex: Female

DRUGS (8)
  1. OMEPRAZOLE [Concomitant]
  2. ZINC [Concomitant]
  3. CALCIUM [Concomitant]
  4. FOLIC ACID [Concomitant]
  5. ALBUTEROL SULFATE AUTOHALER [Suspect]
     Dates: start: 20110120, end: 20110121
  6. NICOTINIC ACID [Concomitant]
  7. HYDROCORTISONE [Concomitant]
  8. ACETYL SALICYLIC ACID USP BAT [Concomitant]

REACTIONS (2)
  - NASAL CONGESTION [None]
  - EPISTAXIS [None]
